FAERS Safety Report 19080021 (Version 1)
Quarter: 2021Q1

REPORT INFORMATION
  Report Type: Spontaneous
  Country: SK (occurrence: SK)
  Receive Date: 20210331
  Receipt Date: 20210331
  Transmission Date: 20210420
  Serious: Yes (Life-Threatening, Hospitalization, Other)
  Sender: FDA-Public Use
  Company Number: SK-VALIDUS PHARMACEUTICALS LLC-SK-2021VAL000822

PATIENT
  Age: 66 Year
  Sex: Male

DRUGS (4)
  1. METRONIDAZOLE. [Suspect]
     Active Substance: METRONIDAZOLE
     Indication: CLOSTRIDIUM DIFFICILE INFECTION
     Route: 065
  2. CEFOTAXIME SODIUM [Suspect]
     Active Substance: CEFOTAXIME SODIUM
     Indication: RESPIRATORY TRACT INFECTION
     Route: 051
  3. CLARITHROMYCIN. [Suspect]
     Active Substance: CLARITHROMYCIN
     Indication: PNEUMONIA CHLAMYDIAL
     Route: 051
  4. CLARITHROMYCIN. [Suspect]
     Active Substance: CLARITHROMYCIN
     Indication: RESPIRATORY TRACT INFECTION

REACTIONS (7)
  - Clostridium difficile colitis [Recovered/Resolved]
  - Megacolon [Recovering/Resolving]
  - Ileus paralytic [Recovering/Resolving]
  - Diarrhoea [Recovering/Resolving]
  - Pseudomembranous colitis [Recovering/Resolving]
  - Abdominal distension [Recovering/Resolving]
  - Therapeutic product effect incomplete [Unknown]
